FAERS Safety Report 17969457 (Version 3)
Quarter: 2020Q3

REPORT INFORMATION
  Report Type: Spontaneous
  Country: US (occurrence: US)
  Receive Date: 20200701
  Receipt Date: 20200708
  Transmission Date: 20201103
  Serious: Yes (Other)
  Sender: FDA-Public Use
  Company Number: US-PFIZER INC-2020250733

PATIENT
  Age: 89 Year
  Sex: Male

DRUGS (2)
  1. LEVOXYL [Suspect]
     Active Substance: LEVOTHYROXINE SODIUM
     Dosage: UNK
  2. LEVOTHYROXINE SODIUM. [Suspect]
     Active Substance: LEVOTHYROXINE SODIUM
     Dosage: UNK (A HIGHER DOSE OF 0.4, PUT ON 0.5 THEN SETTLED ON 0.6)

REACTIONS (11)
  - Blood pressure increased [Not Recovered/Not Resolved]
  - Overdose [Unknown]
  - Weight decreased [Not Recovered/Not Resolved]
  - Hyperthyroidism [Unknown]
  - Dizziness [Unknown]
  - Diabetes mellitus [Unknown]
  - Tremor [Not Recovered/Not Resolved]
  - Sleep disorder [Not Recovered/Not Resolved]
  - Blood thyroid stimulating hormone increased [Not Recovered/Not Resolved]
  - Heart rate increased [Not Recovered/Not Resolved]
  - Hyperhidrosis [Not Recovered/Not Resolved]
